FAERS Safety Report 18066257 (Version 2)
Quarter: 2020Q3

REPORT INFORMATION
  Report Type: Spontaneous
  Country: US (occurrence: US)
  Receive Date: 20200724
  Receipt Date: 20200727
  Transmission Date: 20201103
  Serious: Yes (Hospitalization, Disabling)
  Sender: FDA-Public Use
  Company Number: US-JNJFOC-20200720898

PATIENT
  Age: 52 Year
  Sex: Female

DRUGS (1)
  1. XARELTO [Suspect]
     Active Substance: RIVAROXABAN
     Indication: PRODUCT USED FOR UNKNOWN INDICATION
     Route: 048

REACTIONS (4)
  - Skin discolouration [Unknown]
  - Gait disturbance [Unknown]
  - Cardiac operation [Unknown]
  - Gastric disorder [Unknown]

NARRATIVE: CASE EVENT DATE: 202007
